FAERS Safety Report 7753368-2 (Version None)
Quarter: 2011Q3

REPORT INFORMATION
  Report Type: 
  Country: None (occurrence: None)
  Receive Date: 20110913
  Receipt Date: 20110829
  Transmission Date: 20111222
  Serious: Yes (Hospitalization)
  Sender: FDA-Public Use
  Company Number: 1000022588

PATIENT
  Age: 83 Year
  Sex: Male

DRUGS (6)
  1. ALLOPURINOL [Concomitant]
  2. SERENACE (HALOPERIDOL) (HALOPERIDOL) [Concomitant]
  3. MEMANTINE HYDROCHLORIDE [Suspect]
     Indication: DEMENTIA ALZHEIMER'S TYPE
     Dosage: 5 MG (5 MG, 1 IN 1 D), ORAL
     Route: 048
     Dates: start: 20110620
  4. ZOLPIDEM TARTRATE [Concomitant]
  5. ARICEPT (DONEPEZIL HYDROCHLORIDE) (DONEPEZIL HYDROCHLOROTHIAZIDE) [Concomitant]
  6. MIYA BM (CLOSTRIDIUM BUTYRICUM) (CLOSTRIDIUM BUTYRICUM) [Concomitant]

REACTIONS (2)
  - HYPERTHERMIA [None]
  - DEHYDRATION [None]
